FAERS Safety Report 24236258 (Version 2)
Quarter: 2024Q4

REPORT INFORMATION
  Report Type: Report from Study
  Country: GB (occurrence: GB)
  Receive Date: 20240822
  Receipt Date: 20241017
  Transmission Date: 20250114
  Serious: Yes (Other)
  Sender: JOHNSON AND JOHNSON
  Company Number: GB-JNJFOC-20240838441

PATIENT
  Age: 64 Year
  Sex: Female

DRUGS (7)
  1. TREMFYA [Suspect]
     Active Substance: GUSELKUMAB
     Indication: Psoriasis
     Route: 058
     Dates: start: 20230704
  2. CANDESARTAN [Concomitant]
     Active Substance: CANDESARTAN
     Indication: Hypertension
     Dates: start: 1999
  3. FOLIC ACID [Concomitant]
     Active Substance: FOLIC ACID
     Indication: Immunosuppression
     Dates: start: 1999
  4. MEBEVERINE [Concomitant]
     Active Substance: MEBEVERINE
     Indication: Irritable bowel syndrome
     Dosage: 135
     Dates: start: 2022
  5. PROBIOTICS NOS [Concomitant]
     Active Substance: PROBIOTICS NOS
     Indication: Irritable bowel syndrome
     Dates: start: 2023
  6. ASCORBIC ACID [Concomitant]
     Active Substance: ASCORBIC ACID
     Dates: start: 2000
  7. CHLORPHENIRAMINE MALEATE [Concomitant]
     Active Substance: CHLORPHENIRAMINE MALEATE
     Indication: Psoriasis
     Dates: start: 2000

REACTIONS (8)
  - Lower respiratory tract infection [Unknown]
  - Injection related reaction [Unknown]
  - Abdominal pain lower [Recovered/Resolved]
  - Constipation [Unknown]
  - Headache [Recovered/Resolved]
  - Dental care [Unknown]
  - Injection site pain [Recovered/Resolved]
  - Injection site erythema [Unknown]

NARRATIVE: CASE EVENT DATE: 20240517
